FAERS Safety Report 9124741 (Version 5)
Quarter: 2016Q3

REPORT INFORMATION
  Report Type: Spontaneous
  Country: US (occurrence: US)
  Receive Date: 20130116
  Receipt Date: 20160804
  Transmission Date: 20161109
  Serious: Yes (Disabling, Other)
  Sender: FDA-Public Use
  Company Number: US-BAYER-2013-004932

PATIENT
  Age: 34 Year
  Sex: Female
  Weight: 65.31 kg

DRUGS (8)
  1. CIPRO [Suspect]
     Active Substance: CIPROFLOXACIN HYDROCHLORIDE
     Indication: INFECTION
     Dosage: UNK
     Dates: start: 2009, end: 20121112
  2. HYDROCODONE [Concomitant]
     Active Substance: HYDROCODONE
     Indication: PAIN
  3. AMITRIPTYLIN [Concomitant]
     Active Substance: AMITRIPTYLINE
     Indication: DEPRESSION
     Dosage: UNK
     Dates: start: 201212
  4. CIPRO [Suspect]
     Active Substance: CIPROFLOXACIN HYDROCHLORIDE
     Indication: INFECTION
     Dosage: UNK
     Dates: start: 20121204
  5. HYDROCODONE [Concomitant]
     Active Substance: HYDROCODONE
     Indication: APPENDICECTOMY
     Dosage: UNK
     Dates: start: 201211
  6. CIPRO [Suspect]
     Active Substance: CIPROFLOXACIN HYDROCHLORIDE
     Indication: URINARY TRACT INFECTION
     Dosage: UNK
     Dates: start: 20100709
  7. METRONIDAZOLE. [Concomitant]
     Active Substance: METRONIDAZOLE
     Dosage: UNK
     Dates: start: 201212
  8. CIPRO [Suspect]
     Active Substance: CIPROFLOXACIN HYDROCHLORIDE
     Indication: INFECTION
     Dosage: 500 MG, BID
     Route: 048
     Dates: start: 20121130

REACTIONS (8)
  - Abasia [None]
  - Toxicity to various agents [None]
  - Emotional distress [None]
  - Pain [None]
  - Injury [None]
  - Anxiety [None]
  - Neuropathy peripheral [Not Recovered/Not Resolved]
  - Adverse drug reaction [None]

NARRATIVE: CASE EVENT DATE: 201212
